FAERS Safety Report 8430903-2 (Version None)
Quarter: 2012Q2

REPORT INFORMATION
  Report Type: 
  Country: None (occurrence: None)
  Receive Date: 20120612
  Receipt Date: 20120606
  Transmission Date: 20120825
  Serious: Yes (Other)
  Sender: FDA-Public Use
  Company Number: VE-PFIZER INC-2012131458

PATIENT
  Age: 66 Year
  Sex: Male

DRUGS (3)
  1. CADUET [Suspect]
     Indication: HYPERCHOLESTEROLAEMIA
  2. TAMSULOSIN [Concomitant]
     Indication: PROSTATIC DISORDER
     Dosage: 4 MG, 1X/DAY
     Route: 048
  3. CADUET [Suspect]
     Indication: HYPERTENSION
     Dosage: AMLODIPINE/ATORVASTATIN 5/10 MG, 1X/DAY
     Route: 048

REACTIONS (2)
  - FALL [None]
  - UPPER LIMB FRACTURE [None]
